FAERS Safety Report 8153841-1 (Version None)
Quarter: 2012Q1

REPORT INFORMATION
  Report Type: 
  Country: None (occurrence: None)
  Receive Date: 20120221
  Receipt Date: 20120208
  Transmission Date: 20120608
  Serious: Yes (Hospitalization, Other)
  Sender: FDA-Public Use
  Company Number: US-ELI_LILLY_AND_COMPANY-US201201000162

PATIENT
  Sex: Female

DRUGS (17)
  1. FORTEO [Suspect]
     Dosage: 20 UG, QD
  2. LIPITOR [Concomitant]
     Dosage: 10 MG, UNK
  3. FORTEO [Suspect]
     Indication: OSTEOPOROSIS
     Dosage: 20 UG, QD
     Route: 065
     Dates: start: 20110901
  4. INSULIN [Concomitant]
  5. PLAVIX [Concomitant]
     Dosage: 75 MG, UNK
  6. LEVOFLOXACIN [Concomitant]
     Dosage: 500 MG, UNK
  7. OMEPRAZOLE [Concomitant]
     Dosage: 25 MG, UNK
  8. ULORIC [Concomitant]
     Dosage: 10 MG, UNK
  9. CARVEDILOL [Concomitant]
     Dosage: 6.5 MG, UNK
  10. AMOXICILLIN AND CLAVULANATE POTASSIUM [Concomitant]
     Dosage: 875 MG, UNK
  11. BENZONATATE [Concomitant]
     Dosage: 100 MG, UNK
  12. CITALOPRAM HYDROBROMIDE [Concomitant]
     Dosage: 10 MG, UNK
  13. ATENOLOL [Concomitant]
     Dosage: 50 MG, UNK
  14. AMBIEN [Concomitant]
     Dosage: 10 MG, UNK
  15. LORATADINE [Concomitant]
     Dosage: 10 MG, UNK
  16. DEXLANSOPRAZOLE [Concomitant]
  17. LEVOTHYROXINE SODIUM [Concomitant]
     Dosage: .05 MG, UNK

REACTIONS (16)
  - KIDNEY INFECTION [None]
  - INJECTION SITE REACTION [None]
  - DIZZINESS [None]
  - BRONCHITIS [None]
  - AORTIC VALVE REPLACEMENT [None]
  - DEHYDRATION [None]
  - PULMONARY FIBROSIS [None]
  - RENAL FAILURE CHRONIC [None]
  - PEPTIC ULCER [None]
  - INJECTION SITE ULCER [None]
  - PRIMARY HYPOTHYROIDISM [None]
  - COUGH [None]
  - FEELING ABNORMAL [None]
  - MALAISE [None]
  - NASOPHARYNGITIS [None]
  - HYPERURICAEMIA [None]
